FAERS Safety Report 8160485-4 (Version None)
Quarter: 2012Q1

REPORT INFORMATION
  Report Type: 
  Country: None (occurrence: None)
  Receive Date: 20120223
  Receipt Date: 20120215
  Transmission Date: 20120608
  Serious: Yes (Other)
  Sender: FDA-Public Use
  Company Number: US-CUBIST-2012S1000176

PATIENT
  Age: 66 Year
  Sex: Female

DRUGS (2)
  1. CUBICIN [Suspect]
     Indication: OSTEOMYELITIS
     Dosage: DOSE UNIT:U UNKNOWN
     Route: 065
  2. RIFAMPIN [Suspect]
     Indication: OSTEOMYELITIS
     Dosage: DOSE UNIT:U UNKNOWN
     Route: 065

REACTIONS (2)
  - DIZZINESS [None]
  - BALANCE DISORDER [None]
